FAERS Safety Report 24223080 (Version 1)
Quarter: 2024Q3

REPORT INFORMATION
  Report Type: Spontaneous
  Country: HK (occurrence: HK)
  Receive Date: 20240819
  Receipt Date: 20240819
  Transmission Date: 20241017
  Serious: Yes (Death)
  Sender: NOVARTIS
  Company Number: HK-002147023-NVSC2024HK167371

PATIENT

DRUGS (1)
  1. SCEMBLIX [Suspect]
     Active Substance: ASCIMINIB HYDROCHLORIDE
     Indication: Acute myeloid leukaemia
     Dosage: UNK
     Route: 065

REACTIONS (1)
  - Death [Fatal]
